FAERS Safety Report 8088175 (Version 5)
Quarter: 2013Q2

REPORT INFORMATION
  Report Type: Spontaneous
  Country: US (occurrence: US)
  Receive Date: 20110812
  Receipt Date: 20130521
  Transmission Date: 20140414
  Serious: Yes (Hospitalization, Other)
  Sender: FDA-Public Use
  Company Number: US-ROCHE-794854

PATIENT
  Age: 14 Year
  Sex: Male
  Weight: 87.62 kg

DRUGS (2)
  1. ACCUTANE [Suspect]
     Indication: ACNE
     Route: 048
     Dates: start: 20000614, end: 200101
  2. BACTRIM [Concomitant]

REACTIONS (13)
  - Intestinal obstruction [Recovering/Resolving]
  - Ileus [Unknown]
  - Colitis ulcerative [Unknown]
  - Gastrointestinal disorder [Unknown]
  - Uveitis [Unknown]
  - Inflammatory bowel disease [Unknown]
  - Anal fistula [Unknown]
  - Episcleritis [Unknown]
  - Deep vein thrombosis [Recovered/Resolved]
  - Lip dry [Unknown]
  - Alanine aminotransferase increased [Unknown]
  - Aspartate aminotransferase increased [Unknown]
  - Haemorrhoids [Unknown]
